FAERS Safety Report 6146562-8 (Version None)
Quarter: 2009Q2

REPORT INFORMATION
  Report Type: 
  Country: None (occurrence: None)
  Receive Date: 20090407
  Receipt Date: 20090330
  Transmission Date: 20091009
  Serious: Yes (Disabling, Other)
  Sender: FDA-Public Use
  Company Number: US-MERCK-0805USA02808

PATIENT
  Age: 56 Year
  Sex: Female

DRUGS (1)
  1. FOSAMAX [Suspect]
     Route: 048
     Dates: start: 20030101, end: 20040101

REACTIONS (18)
  - ADVERSE EVENT [None]
  - ARTHRITIS [None]
  - BONE DISORDER [None]
  - COLITIS [None]
  - DYSLIPIDAEMIA [None]
  - DYSPHAGIA [None]
  - HAEMORRHOIDS [None]
  - HORMONE LEVEL ABNORMAL [None]
  - HYPERSENSITIVITY [None]
  - INFECTION [None]
  - ORAL INFECTION [None]
  - ORAL PAIN [None]
  - OSTEONECROSIS [None]
  - PANCREATITIS RELAPSING [None]
  - RESORPTION BONE INCREASED [None]
  - THYROID DISORDER [None]
  - TOOTH DISORDER [None]
  - VENOUS INSUFFICIENCY [None]
